FAERS Safety Report 17406689 (Version 1)
Quarter: 2020Q1

REPORT INFORMATION
  Report Type: Spontaneous
  Country: US (occurrence: US)
  Receive Date: 20200212
  Receipt Date: 20200212
  Transmission Date: 20200409
  Serious: No
  Sender: FDA-Public Use
  Company Number: US-BRISTOL-MYERS SQUIBB COMPANY-BMS-2020-011942

PATIENT
  Sex: Female

DRUGS (1)
  1. SPRYCEL [Suspect]
     Active Substance: DASATINIB
     Indication: EPILEPSY
     Dosage: 140 MILLIGRAM
     Route: 048
     Dates: start: 20191127

REACTIONS (2)
  - Intentional product use issue [Unknown]
  - Fatigue [Unknown]
